FAERS Safety Report 4377083-0 (Version None)
Quarter: 2004Q2

REPORT INFORMATION
  Report Type: 
  Country: None (occurrence: None)
  Receive Date: 20040614
  Receipt Date: 20030925
  Transmission Date: 20050107
  Serious: Yes (Hospitalization, Disabling, Other)
  Sender: FDA-Public Use
  Company Number: US-MERCK-0309USA02688

PATIENT
  Age: 34 Year
  Sex: Male
  Weight: 61 kg

DRUGS (1)
  1. VIOXX [Suspect]
     Indication: TOOTHACHE
     Route: 048
     Dates: start: 20010912, end: 20010926

REACTIONS (45)
  - ALANINE AMINOTRANSFERASE INCREASED [None]
  - BALANCE DISORDER [None]
  - BAND NEUTROPHIL PERCENTAGE INCREASED [None]
  - CATHETER RELATED INFECTION [None]
  - CATHETER SITE INFECTION [None]
  - CEREBELLAR ATAXIA [None]
  - CEREBRAL ATROPHY [None]
  - CHEST WALL ABSCESS [None]
  - CSF LYMPHOCYTE COUNT INCREASED [None]
  - CSF WHITE BLOOD CELL COUNT INCREASED [None]
  - DIFFICULTY IN WALKING [None]
  - DIPLOPIA [None]
  - DYSARTHRIA [None]
  - EMOTIONAL DISTRESS [None]
  - ENCEPHALITIS BRAIN STEM [None]
  - EXCORIATION [None]
  - FALL [None]
  - GAIT DISTURBANCE [None]
  - HAEMATOCRIT DECREASED [None]
  - HERPES OPHTHALMIC [None]
  - HERPES ZOSTER [None]
  - HODGKIN'S DISEASE NODULAR SCLEROSIS STAGE UNSPECIFIED [None]
  - HODGKIN'S DISEASE STAGE I [None]
  - HYPOAESTHESIA [None]
  - INTERVERTEBRAL DISC DISPLACEMENT [None]
  - INTERVERTEBRAL DISC PROTRUSION [None]
  - LACUNAR INFARCTION [None]
  - LOSS OF EMPLOYMENT [None]
  - LYMPHOCYTE PERCENTAGE DECREASED [None]
  - MENINGITIS [None]
  - MENINGITIS ASEPTIC [None]
  - MENINGITIS HERPES [None]
  - MENINGITIS VIRAL [None]
  - NASAL CYST [None]
  - NON-HODGKIN'S LYMPHOMA [None]
  - PARAESTHESIA [None]
  - POLYTRAUMATISM [None]
  - PRURITUS [None]
  - PYREXIA [None]
  - STAPHYLOCOCCAL ABSCESS [None]
  - STAPHYLOCOCCAL SEPSIS [None]
  - VERTIGO [None]
  - VESTIBULITIS [None]
  - VISION BLURRED [None]
  - VOMITING [None]
